FAERS Safety Report 8915606 (Version 1)
Quarter: 2012Q4

REPORT INFORMATION
  Report Type: 
  Country: US (occurrence: US)
  Receive Date: 20121119
  Receipt Date: 20121119
  Transmission Date: 20130627
  Serious: No
  Sender: FDA-Public Use
  Company Number: US-FOUGERA-2012FO001240

PATIENT
  Sex: Female

DRUGS (1)
  1. CLOBETASOL PROPIONATE [Suspect]
     Indication: EXPOSURE TO TOXIC AGENT
     Route: 061
     Dates: start: 20120705

REACTIONS (1)
  - Application site discolouration [Not Recovered/Not Resolved]
